FAERS Safety Report 5742419-2 (Version None)
Quarter: 2008Q2

REPORT INFORMATION
  Report Type: 
  Country: None (occurrence: None)
  Receive Date: 20080519
  Receipt Date: 20080512
  Transmission Date: 20081010
  Serious: Yes (Other)
  Sender: FDA-Public Use
  Company Number: US-JNJFOC-20080305756

PATIENT
  Sex: Female
  Weight: 61.24 kg

DRUGS (1)
  1. LEVAQUIN [Suspect]
     Indication: UPPER RESPIRATORY TRACT INFECTION
     Route: 048

REACTIONS (8)
  - CONTUSION [None]
  - EYELID OEDEMA [None]
  - HOT FLUSH [None]
  - LIP SWELLING [None]
  - MELANODERMIA [None]
  - OEDEMA PERIPHERAL [None]
  - PARAESTHESIA [None]
  - RASH [None]
